FAERS Safety Report 4764971-6 (Version None)
Quarter: 2005Q3

REPORT INFORMATION
  Report Type: 
  Country: None (occurrence: None)
  Receive Date: 20050909
  Receipt Date: 20050831
  Transmission Date: 20060218
  Serious: Yes (Hospitalization)
  Sender: FDA-Public Use
  Company Number: FR-ROCHE-416043

PATIENT
  Age: 41 Year
  Sex: Male
  Weight: 58 kg

DRUGS (6)
  1. PEGASYS [Suspect]
     Route: 058
     Dates: start: 20041108, end: 20050705
  2. COPEGUS [Concomitant]
     Route: 048
     Dates: start: 20041108, end: 20050707
  3. DEROXAT [Concomitant]
     Indication: DEPRESSION
     Route: 048
     Dates: start: 20050214
  4. SUBUTEX [Concomitant]
     Dates: start: 19990615
  5. LEXOMIL [Concomitant]
     Dates: start: 19990615
  6. STILNOX [Concomitant]
     Dates: start: 19990615

REACTIONS (16)
  - ANAEMIA [None]
  - BILIARY FIBROSIS [None]
  - BLOOD ALKALINE PHOSPHATASE INCREASED [None]
  - CONDITION AGGRAVATED [None]
  - DEPRESSION [None]
  - DRY MOUTH [None]
  - FURUNCLE [None]
  - GAMMA-GLUTAMYLTRANSFERASE INCREASED [None]
  - HEPATITIS CHOLESTATIC [None]
  - HERPES VIRUS INFECTION [None]
  - INFLUENZA LIKE ILLNESS [None]
  - INSOMNIA [None]
  - LEUKOPENIA [None]
  - LYMPHOPENIA [None]
  - MYALGIA [None]
  - NEUTROPENIA [None]
